FAERS Safety Report 5128300-0 (Version None)
Quarter: 2006Q4

REPORT INFORMATION
  Report Type: 
  Country: None (occurrence: None)
  Receive Date: 20061011
  Receipt Date: 20060921
  Transmission Date: 20070319
  Serious: Yes (Hospitalization)
  Sender: FDA-Public Use
  Company Number: US200609002651

PATIENT
  Age: 74 Year
  Sex: Female
  Weight: 46.7 kg

DRUGS (2)
  1. GEMZAR [Suspect]
     Indication: LUNG CANCER METASTATIC
     Dosage: 1430 MG, INTRAVENOUS
     Route: 042
  2. CARBOPLATIN [Concomitant]

REACTIONS (8)
  - ANAEMIA OF MALIGNANT DISEASE [None]
  - ARTHRALGIA [None]
  - CEREBRAL INFARCTION [None]
  - FEMORAL NECK FRACTURE [None]
  - MENTAL STATUS CHANGES [None]
  - METASTASES TO BONE [None]
  - PATHOLOGICAL FRACTURE [None]
  - STENT PLACEMENT [None]
